FAERS Safety Report 7314850-5 (Version None)
Quarter: 2011Q1

REPORT INFORMATION
  Report Type: 
  Country: None (occurrence: None)
  Receive Date: 20110225
  Receipt Date: 20100104
  Transmission Date: 20110831
  Serious: No
  Sender: FDA-Public Use
  Company Number: US-MYLANLABS-2010S1000264

PATIENT
  Age: 27 Year
  Sex: Male

DRUGS (5)
  1. NASONEX [Concomitant]
  2. AMNESTEEM [Suspect]
     Route: 048
     Dates: end: 20091230
  3. VITAMIN E [Concomitant]
  4. AMNESTEEM [Suspect]
     Indication: ACNE
     Route: 048
     Dates: end: 20091230
  5. AMNESTEEM [Suspect]
     Route: 048
     Dates: start: 20100106

REACTIONS (1)
  - ABDOMINAL PAIN [None]
